FAERS Safety Report 7411253-X (Version None)
Quarter: 2011Q2

REPORT INFORMATION
  Report Type: 
  Country: None (occurrence: None)
  Receive Date: 20110413
  Receipt Date: 20100428
  Transmission Date: 20111010
  Serious: No
  Sender: FDA-Public Use
  Company Number: US-BRISTOL-MYERS SQUIBB COMPANY-15082951

PATIENT
  Age: 85 Year
  Sex: Male
  Weight: 91 kg

DRUGS (6)
  1. ERBITUX [Suspect]
     Indication: RECTAL CANCER
     Dosage: DOSE- RECIEVED FIRST OF ERBITUX.
  2. LASIX [Concomitant]
  3. COUMADIN [Concomitant]
  4. AMIODARONE HCL [Concomitant]
  5. METOPROLOL TARTRATE [Concomitant]
  6. TOPROL-XL [Concomitant]

REACTIONS (1)
  - TACHYCARDIA [None]
